FAERS Safety Report 11557623 (Version 1)
Quarter: 2015Q3

REPORT INFORMATION
  Report Type: Spontaneous
  Country: US (occurrence: US)
  Receive Date: 20150927
  Receipt Date: 20150927
  Transmission Date: 20151125
  Serious: No
  Sender: FDA-Public Use
  Company Number: US-009507513-1509USA012681

PATIENT
  Age: 81 Year
  Sex: Female

DRUGS (10)
  1. VITAMIN D [Concomitant]
     Active Substance: CHOLECALCIFEROL
  2. BELSOMRA [Suspect]
     Active Substance: SUVOREXANT
     Indication: INSOMNIA
     Dosage: SPLIT THE 20MG SAMPLE TABLET THE FIRST DAY INTO HALVES AND INGESTED IT
     Route: 048
     Dates: start: 201509, end: 201509
  3. CREON [Concomitant]
     Active Substance: PANCRELIPASE AMYLASE\PANCRELIPASE LIPASE\PANCRELIPASE PROTEASE
  4. VITAMINS (UNSPECIFIED) [Concomitant]
     Active Substance: VITAMINS
  5. BELSOMRA [Suspect]
     Active Substance: SUVOREXANT
     Dosage: TAKING A QUARTER TABLET ONCE AT NIGHT
     Route: 048
     Dates: start: 201509
  6. OMEPRAZOLE. [Concomitant]
     Active Substance: OMEPRAZOLE
  7. CYANOCOBALAMIN. [Concomitant]
     Active Substance: CYANOCOBALAMIN
  8. CALCIUM (UNSPECIFIED) [Concomitant]
     Active Substance: CALCIUM
  9. UBIDECARENONE [Concomitant]
     Active Substance: UBIDECARENONE
  10. ATROPINE SULFATE (+) DIPHENOXYLATE HYDROCHLORIDE [Concomitant]

REACTIONS (4)
  - Fatigue [Unknown]
  - Thyroid disorder [Unknown]
  - Wrong technique in product usage process [Unknown]
  - Flatulence [Unknown]

NARRATIVE: CASE EVENT DATE: 201509
